FAERS Safety Report 25953019 (Version 1)
Quarter: 2025Q4

REPORT INFORMATION
  Report Type: Spontaneous
  Country: BR (occurrence: BR)
  Receive Date: 20251023
  Receipt Date: 20251023
  Transmission Date: 20260118
  Serious: Yes (Other)
  Sender: CHEPLAPHARM
  Company Number: BR-BIOPAS-2025-BR-000215

PATIENT
  Age: 80 Year
  Sex: Female

DRUGS (8)
  1. CLONAZEPAM [Suspect]
     Active Substance: CLONAZEPAM
     Dosage: MAH REF 115240011
     Route: 048
     Dates: start: 19971017
  2. CLONAZEPAM [Suspect]
     Active Substance: CLONAZEPAM
     Dosage: MAH REF 115240011
     Route: 048
  3. ESCITALOPRAM [Concomitant]
     Active Substance: ESCITALOPRAM OXALATE
     Dosage: DAILY DOSE: 20 MILLIGRAM
     Route: 048
  4. PANTOPRAZOLE SODIUM [Concomitant]
     Active Substance: PANTOPRAZOLE SODIUM
  5. Renitec [Concomitant]
     Dates: start: 19971017
  6. CHOLECALCIFEROL [Concomitant]
     Active Substance: CHOLECALCIFEROL
     Dosage: 7000 IU
  7. Sarcoplex [Concomitant]
  8. Disfor [Concomitant]

REACTIONS (4)
  - Gastric cancer [Recovered/Resolved]
  - Osteopenia [Recovering/Resolving]
  - Product availability issue [Not Recovered/Not Resolved]
  - Off label use [Not Recovered/Not Resolved]

NARRATIVE: CASE EVENT DATE: 19971017
